FAERS Safety Report 6764671-7 (Version None)
Quarter: 2010Q2

REPORT INFORMATION
  Report Type: 
  Country: None (occurrence: None)
  Receive Date: 20100610
  Receipt Date: 20100608
  Transmission Date: 20101027
  Serious: Yes (Life-Threatening, Hospitalization)
  Sender: FDA-Public Use
  Company Number: FR-RB-003596-10

PATIENT
  Sex: Male
  Weight: 78 kg

DRUGS (2)
  1. SUBOXONE [Suspect]
     Route: 060
     Dates: start: 20091222, end: 20100303
  2. NICOTINE [Concomitant]
     Indication: NICOTINE DEPENDENCE
     Route: 062
     Dates: start: 20100308

REACTIONS (5)
  - AGITATION [None]
  - ANAEMIA [None]
  - DEPRESSION [None]
  - GUN SHOT WOUND [None]
  - INSOMNIA [None]
